FAERS Safety Report 17029153 (Version 6)
Quarter: 2020Q4

REPORT INFORMATION
  Report Type: Report from Study
  Country: JP (occurrence: JP)
  Receive Date: 20191114
  Receipt Date: 20201028
  Transmission Date: 20210113
  Serious: Yes (Hospitalization, Other)
  Sender: FDA-Public Use
  Company Number: JP-ASTELLAS-2019JP025484

PATIENT
  Age: 60 Year
  Sex: Male
  Weight: 54 kg

DRUGS (2)
  1. ASP2215 [Suspect]
     Active Substance: GILTERITINIB
     Route: 048
     Dates: start: 20191206, end: 20200520
  2. ASP2215 [Suspect]
     Active Substance: GILTERITINIB
     Indication: ACUTE MYELOID LEUKAEMIA REFRACTORY
     Route: 048
     Dates: start: 20191011

REACTIONS (5)
  - Febrile neutropenia [Recovered/Resolved]
  - Hypoaesthesia [Unknown]
  - Malaise [Unknown]
  - Neutrophil count decreased [Unknown]
  - Hepatic function abnormal [Unknown]

NARRATIVE: CASE EVENT DATE: 20191108
